FAERS Safety Report 21703150 (Version 1)
Quarter: 2022Q4

REPORT INFORMATION
  Report Type: Report from Study
  Country: US (occurrence: US)
  Receive Date: 20221209
  Receipt Date: 20221209
  Transmission Date: 20230113
  Serious: No
  Sender: FDA-Public Use
  Company Number: US-ABBVIE-4184037

PATIENT
  Sex: Female
  Weight: 79 kg

DRUGS (1)
  1. SKYRIZI [Suspect]
     Active Substance: RISANKIZUMAB-RZAA
     Indication: Psoriasis
     Dosage: FIRST ADMIN DATE: 26 JUL 2022
     Route: 058

REACTIONS (2)
  - Pain [Unknown]
  - Psoriasis [Unknown]

NARRATIVE: CASE EVENT DATE: 20220101
